FAERS Safety Report 15433134 (Version 1)
Quarter: 2018Q3

REPORT INFORMATION
  Report Type: Spontaneous
  Country: US (occurrence: US)
  Receive Date: 20180927
  Receipt Date: 20180927
  Transmission Date: 20181010
  Serious: No
  Sender: FDA-Public Use
  Company Number: US-NOVEN PHARMACEUTICALS, INC.-US2017001339

PATIENT

DRUGS (6)
  1. XANAX [Concomitant]
     Active Substance: ALPRAZOLAM
     Indication: INSOMNIA
     Dosage: UNK, UNKNOWN
  2. NATURE?THROID [Concomitant]
     Active Substance: THYROID, PORCINE
     Indication: AUTOIMMUNE THYROIDITIS
  3. COMBIPATCH [Suspect]
     Active Substance: ESTRADIOL\NORETHINDRONE ACETATE
     Indication: HOT FLUSH
     Dosage: 50/140 MG, UNKNOWN
     Route: 062
     Dates: start: 2017, end: 2017
  4. COMBIPATCH [Suspect]
     Active Substance: ESTRADIOL\NORETHINDRONE ACETATE
     Indication: NIGHT SWEATS
     Dosage: HALF A PATCH OF 50/140 MG, 2/WK
     Route: 062
     Dates: start: 201709, end: 2017
  5. COMBIPATCH [Suspect]
     Active Substance: ESTRADIOL\NORETHINDRONE ACETATE
     Dosage: 50/140 MG, UNKNOWN
     Route: 062
     Dates: start: 201712
  6. COMBIPATCH [Suspect]
     Active Substance: ESTRADIOL\NORETHINDRONE ACETATE
     Dosage: 50/140 MG, UNKNOWN
     Route: 062

REACTIONS (15)
  - Product storage error [Recovered/Resolved]
  - Drug administration error [Recovered/Resolved]
  - Feeling hot [Unknown]
  - Drug prescribing error [Recovered/Resolved]
  - Abdominal pain upper [Unknown]
  - Application site erythema [Unknown]
  - Product administered at inappropriate site [Recovered/Resolved]
  - Prescribed underdose [Recovered/Resolved]
  - Therapy cessation [Not Recovered/Not Resolved]
  - Application site irritation [Unknown]
  - Wrong technique in product usage process [Recovered/Resolved]
  - Off label use [Recovered/Resolved]
  - Application site rash [Unknown]
  - Application site swelling [Unknown]
  - Application site urticaria [Unknown]

NARRATIVE: CASE EVENT DATE: 2017
